FAERS Safety Report 12370532 (Version 1)
Quarter: 2016Q2

REPORT INFORMATION
  Report Type: Spontaneous
  Country: PT (occurrence: PT)
  Receive Date: 20160516
  Receipt Date: 20160516
  Transmission Date: 20160815
  Serious: Yes (Hospitalization)
  Sender: FDA-Public Use
  Company Number: PHHY2016PT063919

PATIENT
  Age: 77 Year
  Sex: Male

DRUGS (1)
  1. METFORMIN [Suspect]
     Active Substance: METFORMIN HYDROCHLORIDE
     Indication: PRODUCT USED FOR UNKNOWN INDICATION
     Route: 065

REACTIONS (5)
  - Metabolic acidosis [Unknown]
  - Respiratory failure [Unknown]
  - Cardiac arrest [Unknown]
  - Atrioventricular block [Unknown]
  - Toxicity to various agents [Unknown]
